FAERS Safety Report 16582777 (Version 3)
Quarter: 2020Q4

REPORT INFORMATION
  Report Type: Spontaneous
  Country: US (occurrence: US)
  Receive Date: 20190717
  Receipt Date: 20201023
  Transmission Date: 20210113
  Serious: Yes (Other)
  Sender: FDA-Public Use
  Company Number: PHEH2019US028586

PATIENT
  Age: 52 Year
  Sex: Female

DRUGS (2)
  1. GLATOPA [Suspect]
     Active Substance: GLATIRAMER ACETATE
     Indication: MULTIPLE SCLEROSIS
     Dosage: 40 MG, QW3
     Route: 058
  2. GLATOPA [Suspect]
     Active Substance: GLATIRAMER ACETATE
     Dosage: 1 DF, QW3 (3 TIMES A WEEK)
     Route: 058
     Dates: start: 20201010

REACTIONS (6)
  - Oral contusion [Recovering/Resolving]
  - Flushing [Recovered/Resolved]
  - Vomiting [Recovered/Resolved]
  - Product dose omission issue [Unknown]
  - Nausea [Recovered/Resolved]
  - Loss of consciousness [Recovering/Resolving]

NARRATIVE: CASE EVENT DATE: 20201010
